FAERS Safety Report 15813064 (Version 2)
Quarter: 2019Q1

REPORT INFORMATION
  Report Type: Spontaneous
  Country: ES (occurrence: ES)
  Receive Date: 20190111
  Receipt Date: 20190114
  Transmission Date: 20190417
  Serious: Yes (Hospitalization, Other)
  Sender: FDA-Public Use
  Company Number: ES-PFIZER INC-2019011306

PATIENT
  Age: 31 Year
  Sex: Male

DRUGS (3)
  1. MIDAZOLAM [Concomitant]
     Active Substance: MIDAZOLAM HYDROCHLORIDE
     Indication: STATUS EPILEPTICUS
     Dosage: UNK (IV MIDAZOLAM INFUSION)
     Route: 042
  2. THIOPENTAL SODIUM. [Concomitant]
     Active Substance: THIOPENTAL SODIUM
     Indication: STATUS EPILEPTICUS
     Dosage: 2 MG/KG, UNK (2 MG/KG/H)
  3. PROPOFOL. [Suspect]
     Active Substance: PROPOFOL
     Indication: STATUS EPILEPTICUS
     Dosage: 300 MG, PER HOUR

REACTIONS (6)
  - Renal failure [Unknown]
  - Propofol infusion syndrome [Unknown]
  - Hypotension [Unknown]
  - Hepatic failure [Unknown]
  - Metabolic acidosis [Unknown]
  - Ventricular extrasystoles [Unknown]
